FAERS Safety Report 12731697 (Version 1)
Quarter: 2016Q3

REPORT INFORMATION
  Report Type: Spontaneous
  Country: US (occurrence: US)
  Receive Date: 20160908
  Receipt Date: 20160908
  Transmission Date: 20161109
  Serious: Yes (Other)
  Sender: FDA-Public Use
  Company Number: None

PATIENT
  Age: 44 Year
  Sex: Male
  Weight: 104.33 kg

DRUGS (4)
  1. AUGMENTIN [Concomitant]
     Active Substance: AMOXICILLIN\CLAVULANATE POTASSIUM
  2. PROMETHAZINE HCL 6.25MG/5ML ORAL [Suspect]
     Active Substance: PROMETHAZINE HYDROCHLORIDE
     Indication: COUGH
     Dosage: 1-2 TEASPOONS NIGHTLY, MOUTH 6.25MG/5ML
     Route: 048
     Dates: start: 20160708, end: 20160801
  3. FLUTICASONE [Concomitant]
     Active Substance: FLUTICASONE\FLUTICASONE PROPIONATE
  4. PROMETHAZINE HCL 6.25MG/5ML ORAL [Suspect]
     Active Substance: PROMETHAZINE HYDROCHLORIDE
     Indication: SLEEP DISORDER
     Dosage: 1-2 TEASPOONS NIGHTLY, MOUTH 6.25MG/5ML
     Route: 048
     Dates: start: 20160708, end: 20160801

REACTIONS (7)
  - Heart rate irregular [None]
  - Dizziness [None]
  - Confusional state [None]
  - Nervousness [None]
  - Mental impairment [None]
  - Pruritus [None]
  - Middle insomnia [None]

NARRATIVE: CASE EVENT DATE: 20160724
